FAERS Safety Report 6122218-2 (Version None)
Quarter: 2009Q1

REPORT INFORMATION
  Report Type: 
  Country: None (occurrence: None)
  Receive Date: 20090318
  Receipt Date: 20090311
  Transmission Date: 20090719
  Serious: Yes (Other)
  Sender: FDA-Public Use
  Company Number: CA-ASTRAZENECA-2009UW06469

PATIENT
  Age: 78 Year
  Sex: Male

DRUGS (1)
  1. NEXIUM [Suspect]
     Indication: GASTRIC ULCER
     Route: 048
     Dates: start: 20090213, end: 20090308

REACTIONS (5)
  - ABDOMINAL PAIN [None]
  - FATIGUE [None]
  - HYPOPHAGIA [None]
  - NAUSEA [None]
  - PNEUMONIA [None]
